FAERS Safety Report 19368335 (Version 1)
Quarter: 2021Q2

REPORT INFORMATION
  Report Type: Spontaneous
  Country: US (occurrence: US)
  Receive Date: 20210602
  Receipt Date: 20210602
  Transmission Date: 20210717
  Serious: No
  Sender: FDA-Public Use
  Company Number: US-ROCHE-2638027

PATIENT
  Age: 65 Year
  Sex: Female
  Weight: 90.8 kg

DRUGS (4)
  1. SOLU?MEDROL [Concomitant]
     Active Substance: METHYLPREDNISOLONE SODIUM SUCCINATE
  2. OCREVUS [Suspect]
     Active Substance: OCRELIZUMAB
     Indication: RELAPSING-REMITTING MULTIPLE SCLEROSIS
     Dosage: 600 MG IV INFUSION EVERY 6 MONTHS
     Route: 041
     Dates: start: 20200106
  3. TYLENOL [Concomitant]
     Active Substance: ACETAMINOPHEN
  4. BENADRYL [Concomitant]
     Active Substance: DIPHENHYDRAMINE HYDROCHLORIDE

REACTIONS (4)
  - Hot flush [Recovered/Resolved]
  - Dyspepsia [Not Recovered/Not Resolved]
  - Somnolence [Unknown]
  - Headache [Not Recovered/Not Resolved]

NARRATIVE: CASE EVENT DATE: 20200106
